FAERS Safety Report 6968960-2 (Version None)
Quarter: 2010Q3

REPORT INFORMATION
  Report Type: 
  Country: None (occurrence: None)
  Receive Date: 20100903
  Receipt Date: 20100903
  Transmission Date: 20110219
  Serious: Yes (Hospitalization)
  Sender: FDA-Public Use
  Company Number: None

PATIENT
  Age: 31 Year
  Sex: Male
  Weight: 93.89 kg

DRUGS (1)
  1. DULOXETINE [Suspect]
     Indication: DEPRESSION
     Dosage: 60 MG EVERY DAY PO
     Route: 048
     Dates: start: 20090420, end: 20100713

REACTIONS (3)
  - ANXIETY [None]
  - INSOMNIA [None]
  - SUICIDAL IDEATION [None]
